FAERS Safety Report 20456457 (Version 3)
Quarter: 2022Q1

REPORT INFORMATION
  Report Type: Spontaneous
  Country: BE (occurrence: BE)
  Receive Date: 20220210
  Receipt Date: 20220221
  Transmission Date: 20220423
  Serious: Yes (Death, Life-Threatening)
  Sender: FDA-Public Use
  Company Number: BE-CELGENE-BEL-20220201725

PATIENT
  Sex: Female

DRUGS (1)
  1. FEDRATINIB [Suspect]
     Active Substance: FEDRATINIB
     Indication: Myelofibrosis
     Route: 048

REACTIONS (2)
  - Cardiac failure [Fatal]
  - Pericardial effusion [Fatal]
